FAERS Safety Report 6447321-9 (Version None)
Quarter: 2009Q4

REPORT INFORMATION
  Report Type: 
  Country: None (occurrence: None)
  Receive Date: 20091119
  Receipt Date: 20091112
  Transmission Date: 20100525
  Serious: Yes (Hospitalization)
  Sender: FDA-Public Use
  Company Number: CHPA2009US22008

PATIENT
  Age: 80 Year
  Sex: Female
  Weight: 45.351 kg

DRUGS (4)
  1. BENEFIBER W/ WHEAT DEXTRIN (NCH) [Suspect]
     Indication: CONSTIPATION
     Dosage: 2 TSP, TID
     Route: 048
     Dates: start: 20080101
  2. BENEFIBER W/ WHEAT DEXTRIN (NCH) [Suspect]
     Indication: DIARRHOEA
  3. LIPITOR [Concomitant]
     Indication: BLOOD CHOLESTEROL INCREASED
  4. DRUG THERAPY NOS [Concomitant]
     Indication: CARDIAC DISORDER

REACTIONS (7)
  - ARTHRITIS [None]
  - BACK PAIN [None]
  - DRUG INEFFECTIVE FOR UNAPPROVED INDICATION [None]
  - EXOSTOSIS [None]
  - FEELING ABNORMAL [None]
  - SURGERY [None]
  - THERAPEUTIC RESPONSE UNEXPECTED [None]
